FAERS Safety Report 4652621-9 (Version None)
Quarter: 2005Q2

REPORT INFORMATION
  Report Type: 
  Country: None (occurrence: None)
  Receive Date: 20050502
  Receipt Date: 20050126
  Transmission Date: 20051028
  Serious: Yes (Other)
  Sender: FDA-Public Use
  Company Number: MED000026

PATIENT
  Age: 58 Year
  Sex: Male
  Weight: 145 kg

DRUGS (3)
  1. HEPARIN SODIUM AND 5% DEXTROSE (HEPARIN SODIUM AND DEXTROSE) [Suspect]
     Indication: DEEP VEIN THROMBOSIS
     Dosage: 500 ML; INTRAVENOUS
     Route: 042
     Dates: start: 20050110, end: 20050114
  2. HEPARIN SODIUM AND 5% DEXTROSE (HEPARIN SODIUM AND DEXTROSE) [Suspect]
     Indication: PULMONARY EMBOLISM
     Dosage: 500 ML; INTRAVENOUS
     Route: 042
     Dates: start: 20050110, end: 20050114
  3. ASPIRIN [Concomitant]

REACTIONS (1)
  - ACTIVATED PARTIAL THROMBOPLASTIN TIME PROLONGED [None]
